FAERS Safety Report 25594740 (Version 2)
Quarter: 2025Q3

REPORT INFORMATION
  Report Type: Report from Study
  Country: US (occurrence: US)
  Receive Date: 20250723
  Receipt Date: 20250730
  Transmission Date: 20251020
  Serious: Yes (Hospitalization)
  Sender: ABBVIE
  Company Number: US-ABBVIE-6363413

PATIENT
  Age: 39 Year
  Sex: Female

DRUGS (1)
  1. RINVOQ [Suspect]
     Active Substance: UPADACITINIB
     Indication: Crohn^s disease
     Dosage: STRENGTH 45 MG
     Route: 048
     Dates: start: 20250628, end: 20250714

REACTIONS (10)
  - Diarrhoea haemorrhagic [Recovered/Resolved]
  - Herpes zoster [Unknown]
  - Asthenia [Unknown]
  - Gastric ulcer [Recovering/Resolving]
  - Crohn^s disease [Recovering/Resolving]
  - Psoriasis [Not Recovered/Not Resolved]
  - Malnutrition [Unknown]
  - Ulcer haemorrhage [Unknown]
  - Feeding disorder [Not Recovered/Not Resolved]
  - Colitis [Unknown]

NARRATIVE: CASE EVENT DATE: 20250701
